FAERS Safety Report 15060552 (Version 1)
Quarter: 2018Q2

REPORT INFORMATION
  Report Type: Spontaneous
  Country: GR (occurrence: GR)
  Receive Date: 20180625
  Receipt Date: 20180625
  Transmission Date: 20180711
  Serious: Yes (Other)
  Sender: FDA-Public Use
  Company Number: GR-EGALET US INC-GR-2018EGA000451

PATIENT

DRUGS (7)
  1. CLONIDINE. [Suspect]
     Active Substance: CLONIDINE
     Indication: CANCER PAIN
  2. BUPIVACAINE. [Suspect]
     Active Substance: BUPIVACAINE
     Indication: CANCER PAIN
  3. ROPIVACAINE [Suspect]
     Active Substance: ROPIVACAINE
     Indication: NEOPLASM MALIGNANT
     Dosage: 25-90 MG, QD
     Route: 058
  4. CLONIDINE. [Suspect]
     Active Substance: CLONIDINE
     Indication: NEOPLASM MALIGNANT
     Dosage: 75-600 ?G, QD
     Route: 058
  5. MORPHINE SULFATE. [Suspect]
     Active Substance: MORPHINE SULFATE
     Indication: CANCER PAIN
     Dosage: 1.5-8.0 MG, QD
     Route: 058
  6. BUPIVACAINE. [Suspect]
     Active Substance: BUPIVACAINE
     Indication: NEOPLASM MALIGNANT
     Dosage: 60-90 MG, QD
     Route: 058
  7. ROPIVACAINE [Suspect]
     Active Substance: ROPIVACAINE
     Indication: CANCER PAIN

REACTIONS (1)
  - Extradural abscess [Unknown]
